FAERS Safety Report 7357260-7 (Version None)
Quarter: 2011Q1

REPORT INFORMATION
  Report Type: 
  Country: None (occurrence: None)
  Receive Date: 20110311
  Receipt Date: 20110311
  Transmission Date: 20110831
  Serious: Yes (Hospitalization)
  Sender: FDA-Public Use
  Company Number: None

PATIENT
  Age: 86 Year
  Sex: Female
  Weight: 37 kg

DRUGS (1)
  1. PRADAXA [Suspect]
     Indication: ATRIAL FIBRILLATION
     Dosage: 75MG BID PO
     Route: 048
     Dates: start: 20110211, end: 20110309

REACTIONS (4)
  - INTERNATIONAL NORMALISED RATIO INCREASED [None]
  - GASTROINTESTINAL HAEMORRHAGE [None]
  - ANAEMIA [None]
  - ACTIVATED PARTIAL THROMBOPLASTIN TIME PROLONGED [None]
